FAERS Safety Report 18987238 (Version 3)
Quarter: 2021Q2

REPORT INFORMATION
  Report Type: Spontaneous
  Country: BE (occurrence: BE)
  Receive Date: 20210309
  Receipt Date: 20210601
  Transmission Date: 20210717
  Serious: Yes (Life-Threatening, Hospitalization, Other)
  Sender: FDA-Public Use
  Company Number: NVSC2021BE041954

PATIENT
  Age: 74 Year
  Sex: Male
  Weight: 90 kg

DRUGS (10)
  1. PREDNISONE. [Concomitant]
     Active Substance: PREDNISONE
     Indication: HORMONE-REFRACTORY PROSTATE CANCER
  2. METOPROLOL. [Concomitant]
     Active Substance: METOPROLOL
     Indication: PRODUCT USED FOR UNKNOWN INDICATION
     Dosage: 50 MG, QD
     Route: 065
  3. ROSUVASTATIN. [Suspect]
     Active Substance: ROSUVASTATIN
     Indication: HYPERCHOLESTEROLAEMIA
     Dosage: 40 MG, QD
     Route: 048
     Dates: end: 201811
  4. ABIRATERONE. [Interacting]
     Active Substance: ABIRATERONE ACETATE
     Indication: HORMONE-REFRACTORY PROSTATE CANCER
     Dosage: 500 MG, QD
     Route: 048
     Dates: start: 201809, end: 201811
  5. DEGARELIX ACETATE [Concomitant]
     Active Substance: DEGARELIX ACETATE
     Indication: HORMONE-REFRACTORY PROSTATE CANCER
  6. ACETYLSALICYLIC ACID [Concomitant]
     Active Substance: ASPIRIN
     Indication: PRODUCT USED FOR UNKNOWN INDICATION
     Dosage: 100 MG, QD
     Route: 065
  7. DEGARELIX ACETATE [Concomitant]
     Active Substance: DEGARELIX ACETATE
     Indication: ANDROGEN THERAPY
     Dosage: 80 MG, QMO
     Route: 065
  8. PREDNISONE. [Concomitant]
     Active Substance: PREDNISONE
     Indication: METASTASES TO BONE
     Dosage: 5 MG, QD (TWO MONTHS PRIOR HIS ADMISSION)
     Route: 065
  9. ABIRATERONE. [Interacting]
     Active Substance: ABIRATERONE ACETATE
     Indication: METASTASES TO BONE
     Dosage: 1000 MG, QD (TWO MONTHS PRIOR HIS ADMISSION)
     Route: 065
  10. ROSUVASTATIN. [Interacting]
     Active Substance: ROSUVASTATIN
     Indication: CORONARY ARTERY DISEASE

REACTIONS (7)
  - Nephropathy toxic [Recovering/Resolving]
  - Drug interaction [Unknown]
  - Toxic cataract [Recovered/Resolved]
  - Acute kidney injury [Recovering/Resolving]
  - Musculoskeletal toxicity [Recovered/Resolved]
  - Rhabdomyolysis [Recovered/Resolved]
  - Acidosis [Unknown]
